FAERS Safety Report 15455561 (Version 8)
Quarter: 2021Q3

REPORT INFORMATION
  Report Type: Spontaneous
  Country: US (occurrence: US)
  Receive Date: 20181002
  Receipt Date: 20210816
  Transmission Date: 20211014
  Serious: Yes (Hospitalization, Other)
  Sender: FDA-Public Use
  Company Number: US-SA-2018SA270183

PATIENT
  Age: 24 Year
  Sex: Female

DRUGS (3)
  1. FABRAZYME [Suspect]
     Active Substance: AGALSIDASE BETA
     Dosage: 100 MG, QOW
     Route: 041
  2. FABRAZYME [Suspect]
     Active Substance: AGALSIDASE BETA
     Indication: FABRY^S DISEASE
     Dosage: 65 MG, QOW
     Route: 041
     Dates: start: 20180129
  3. FABRAZYME [Suspect]
     Active Substance: AGALSIDASE BETA
     Dosage: 64 MG, QOW
     Route: 042
     Dates: start: 20201222

REACTIONS (7)
  - Pulmonary thrombosis [Unknown]
  - Paraesthesia [Not Recovered/Not Resolved]
  - Diarrhoea [Unknown]
  - Product dose omission issue [Unknown]
  - Weight decreased [Unknown]
  - Thrombosis [Unknown]
  - Pneumonia [Unknown]

NARRATIVE: CASE EVENT DATE: 20190404
